FAERS Safety Report 15749887 (Version 1)
Quarter: 2018Q4

REPORT INFORMATION
  Report Type: Spontaneous
  Country: US (occurrence: US)
  Receive Date: 20181221
  Receipt Date: 20181221
  Transmission Date: 20190205
  Serious: No
  Sender: FDA-Public Use
  Company Number: US-MELINTA THERAPEUTICS, INC-US-MLNT-18-00241

PATIENT
  Age: 60 Year
  Sex: Male

DRUGS (6)
  1. CEFEPIME [Concomitant]
     Active Substance: CEFEPIME HYDROCHLORIDE
     Indication: KLEBSIELLA INFECTION
     Dosage: NOT PROVIDED
     Dates: start: 20180607, end: 20180608
  2. GENTAMICIN. [Concomitant]
     Active Substance: GENTAMICIN
     Indication: KLEBSIELLA INFECTION
     Dosage: NOT PROVIDED
     Dates: start: 20180608, end: 20180613
  3. TYGACIL [Concomitant]
     Active Substance: TIGECYCLINE
     Indication: KLEBSIELLA INFECTION
     Dosage: NOT PROVIDED
     Dates: start: 20180612, end: 20180618
  4. VABOMERE [Suspect]
     Active Substance: MEROPENEM\VABORBACTAM
     Indication: KLEBSIELLA INFECTION
     Dosage: NOT PROVIDED
     Dates: start: 20180613
  5. VANCOMYCIN [Concomitant]
     Active Substance: VANCOMYCIN
     Indication: KLEBSIELLA INFECTION
     Dosage: NOT PROVIDED
     Dates: start: 20180607, end: 20180612
  6. VANCOMYCIN [Concomitant]
     Active Substance: VANCOMYCIN
     Dosage: NOT PROVIDED
     Dates: start: 20180613, end: 20180630

REACTIONS (3)
  - Blood culture positive [Unknown]
  - Off label use [Unknown]
  - Product container issue [Unknown]

NARRATIVE: CASE EVENT DATE: 201806
